FAERS Safety Report 7464523-3 (Version None)
Quarter: 2011Q2

REPORT INFORMATION
  Report Type: 
  Country: None (occurrence: None)
  Receive Date: 20110428
  Receipt Date: 20110418
  Transmission Date: 20111010
  Serious: Yes (Death, Hospitalization, Other)
  Sender: FDA-Public Use
  Company Number: 201110453

PATIENT
  Sex: Female

DRUGS (1)
  1. LIORESAL [Suspect]
     Indication: MUSCLE SPASTICITY
     Dosage: MCG, DAILY, INTRATHECAL
     Route: 037
     Dates: start: 20060308, end: 20060601

REACTIONS (10)
  - HALLUCINATION, VISUAL [None]
  - AGITATION [None]
  - ILLUSION [None]
  - DISORIENTATION [None]
  - CONFUSIONAL STATE [None]
  - DELUSION [None]
  - ANXIETY [None]
  - RESTLESSNESS [None]
  - DRUG WITHDRAWAL SYNDROME [None]
  - DELIRIUM [None]
